FAERS Safety Report 13454066 (Version 1)
Quarter: 2017Q2

REPORT INFORMATION
  Report Type: Spontaneous
  Country: US (occurrence: US)
  Receive Date: 20170418
  Receipt Date: 20170418
  Transmission Date: 20170830
  Serious: No
  Sender: FDA-Public Use
  Company Number: US-ALLERGAN-1674016US

PATIENT
  Sex: Female
  Weight: 57.6 kg

DRUGS (2)
  1. EYE DROPS [Concomitant]
     Active Substance: UNSPECIFIED INGREDIENT
     Indication: OCULAR HYPERAEMIA
  2. LATISSE [Suspect]
     Active Substance: BIMATOPROST
     Indication: GROWTH OF EYELASHES
     Dosage: 2 GTT, UNK
     Route: 061
     Dates: start: 20160928, end: 20160930

REACTIONS (2)
  - Lacrimation increased [Recovered/Resolved]
  - Eye pain [Recovered/Resolved]
